FAERS Safety Report 5742460-X (Version None)
Quarter: 2008Q2

REPORT INFORMATION
  Report Type: 
  Country: None (occurrence: None)
  Receive Date: 20080519
  Receipt Date: 20080508
  Transmission Date: 20081010
  Serious: Yes (Other)
  Sender: FDA-Public Use
  Company Number: US-JNJFOC-20080501843

PATIENT
  Sex: Male
  Weight: 69.4 kg

DRUGS (18)
  1. REMICADE [Suspect]
     Indication: PSORIATIC ARTHROPATHY
     Route: 042
  2. REMICADE [Suspect]
     Indication: RHEUMATOID ARTHRITIS
     Dosage: 2ND INFUSION
     Route: 042
  3. REMICADE [Suspect]
     Indication: ANKYLOSING SPONDYLITIS
     Route: 042
  4. KADIAN [Concomitant]
     Route: 048
  5. VALIUM [Concomitant]
  6. ATARAX [Concomitant]
  7. SYNTHROID [Concomitant]
  8. LIPITOR [Concomitant]
  9. METAFORMIN [Concomitant]
     Route: 048
  10. ALTASE [Concomitant]
     Route: 048
  11. PLAVIX [Concomitant]
     Route: 048
  12. EFFEXOR XR [Concomitant]
     Route: 048
  13. NITROGLYCERIN [Concomitant]
  14. ASPIRIN [Concomitant]
     Route: 048
  15. CILOSTAZOL [Concomitant]
     Indication: PAIN
     Dosage: 100MG TWICE DAILY OR AS NECESSARY
  16. FERROUS SULFATE TAB [Concomitant]
     Route: 048
  17. VICODIN [Concomitant]
  18. KADIAN [Concomitant]

REACTIONS (5)
  - BURNING SENSATION [None]
  - CHILLS [None]
  - DYSPNOEA [None]
  - INFUSION RELATED REACTION [None]
  - VOMITING [None]
